FAERS Safety Report 4830170-2 (Version None)
Quarter: 2005Q4

REPORT INFORMATION
  Report Type: 
  Country: None (occurrence: None)
  Receive Date: 20051117
  Receipt Date: 20050826
  Transmission Date: 20060501
  Serious: Yes (Hospitalization)
  Sender: FDA-Public Use
  Company Number: US-MERCK-0508USA04426

PATIENT
  Age: 66 Year
  Sex: Male
  Weight: 90 kg

DRUGS (5)
  1. VIOXX [Suspect]
     Indication: EPIDIDYMITIS
     Route: 048
     Dates: start: 20011201, end: 20030801
  2. VIOXX [Suspect]
     Indication: ARTHRITIS
     Route: 048
     Dates: start: 20011201, end: 20030801
  3. GLUCOVANCE [Concomitant]
     Indication: DIABETES MELLITUS NON-INSULIN-DEPENDENT
     Route: 065
  4. VIOXX [Suspect]
     Route: 048
     Dates: start: 20011201, end: 20030801
  5. VIOXX [Suspect]
     Route: 048
     Dates: start: 20011201, end: 20030801

REACTIONS (6)
  - ARTERIOSCLEROSIS CORONARY ARTERY [None]
  - BACK PAIN [None]
  - BLOOD CHOLESTEROL INCREASED [None]
  - CARDIAC DISORDER [None]
  - HYPERTENSION [None]
  - MYOCARDIAL INFARCTION [None]
